FAERS Safety Report 5273909-7 (Version None)
Quarter: 2007Q1

REPORT INFORMATION
  Report Type: 
  Country: None (occurrence: None)
  Receive Date: 20070323
  Receipt Date: 20070313
  Transmission Date: 20070707
  Serious: Yes (Other)
  Sender: FDA-Public Use
  Company Number: PHBS2006JP18681

PATIENT
  Sex: Male

DRUGS (2)
  1. ZOMETA [Suspect]
     Indication: METASTASES TO BONE
     Route: 041
     Dates: start: 20060801
  2. AREDIA [Suspect]
     Indication: METASTASES TO BONE
     Route: 065
     Dates: end: 20060801

REACTIONS (3)
  - OSTEONECROSIS [None]
  - SURGERY [None]
  - TOOTHACHE [None]
